FAERS Safety Report 19685044 (Version 1)
Quarter: 2021Q3

REPORT INFORMATION
  Report Type: Spontaneous
  Country: US (occurrence: US)
  Receive Date: 20210810
  Receipt Date: 20210810
  Transmission Date: 20211014
  Serious: No
  Sender: FDA-Public Use
  Company Number: None

PATIENT
  Age: 37 Year
  Sex: Female

DRUGS (1)
  1. HUMIRA [Suspect]
     Active Substance: ADALIMUMAB
     Indication: SCLERITIS
     Dosage: 1 PEN EVERY 2 WEEKS SQ
     Route: 058
     Dates: start: 202106

REACTIONS (2)
  - Nasopharyngitis [None]
  - Hypersensitivity [None]

NARRATIVE: CASE EVENT DATE: 202107
